FAERS Safety Report 20590844 (Version 1)
Quarter: 2022Q1

REPORT INFORMATION
  Report Type: Spontaneous
  Country: US (occurrence: US)
  Receive Date: 20220314
  Receipt Date: 20220314
  Transmission Date: 20220423
  Serious: No
  Sender: FDA-Public Use
  Company Number: US-SANOFI-01004183

PATIENT

DRUGS (12)
  1. LANTUS [Suspect]
     Active Substance: INSULIN GLARGINE
  2. APIDRA SOLOSTAR [Suspect]
     Active Substance: INSULIN GLULISINE
  3. APIDRA [Suspect]
     Active Substance: INSULIN GLULISINE
  4. SOLIQUA 100/33 [Suspect]
     Active Substance: INSULIN GLARGINE\LIXISENATIDE
  5. ADMELOG [Suspect]
     Active Substance: INSULIN LISPRO
  6. ADMELOG [Suspect]
     Active Substance: INSULIN LISPRO
  7. TUBERSOL [Suspect]
     Active Substance: TUBERCULIN PURIFIED PROTEIN DERIVATIVE
  8. LANTUS SOLOSTAR [Suspect]
     Active Substance: INSULIN GLARGINE
  9. FLUBLOK [Suspect]
     Active Substance: INFLUENZA A VIRUS A/CALIFORNIA/7/2009 (H1N1) RECOMBINANT HEMAGGLUTININ ANTIGEN\INFLUENZA A VIRUS A/V
  10. FLUZONE QUADRIVALENT NOS [Suspect]
     Active Substance: INFLUENZA A VIRUS A/CALIFORNIA/7/2009 X-179A (H1N1) ANTIGEN (FORMALDEHYDE INACTIVATED)\INFLUENZA A V
  11. ELITEK [Suspect]
     Active Substance: RASBURICASE
  12. ELITEK [Suspect]
     Active Substance: RASBURICASE

REACTIONS (1)
  - Product storage error [Unknown]
